FAERS Safety Report 19461806 (Version 1)
Quarter: 2021Q2

REPORT INFORMATION
  Report Type: Spontaneous
  Country: IE (occurrence: IE)
  Receive Date: 20210625
  Receipt Date: 20210625
  Transmission Date: 20210717
  Serious: Yes (Other)
  Sender: FDA-Public Use
  Company Number: IE-ORGANON-O2106IRL002013

PATIENT
  Age: 43 Year
  Sex: Female
  Weight: 57 kg

DRUGS (4)
  1. SYMBICORT [Concomitant]
     Active Substance: BUDESONIDE\FORMOTEROL FUMARATE DIHYDRATE
     Indication: ASTHMA
     Dosage: TWICE DAILY
  2. VENTOLINE [SALBUTAMOL SULFATE] [Concomitant]
     Active Substance: ALBUTEROL SULFATE
     Dosage: AS NEEDED
  3. MONTELAIR [Suspect]
     Active Substance: MONTELUKAST SODIUM
     Indication: ASTHMA
     Dosage: UNK
     Dates: start: 20181001, end: 20190815
  4. SINGULAIR [Suspect]
     Active Substance: MONTELUKAST SODIUM
     Indication: ASTHMA
     Dosage: UNK; FILM?COATED TABLET
     Dates: start: 20181001, end: 20190815

REACTIONS (4)
  - Suicidal ideation [Recovered/Resolved]
  - Emotional distress [Recovered/Resolved]
  - Anxiety [Recovered/Resolved]
  - Formication [Recovered/Resolved]

NARRATIVE: CASE EVENT DATE: 20181001
